FAERS Safety Report 6237525 (Version 3)
Quarter: 2018Q4

REPORT INFORMATION
  Report Type: Spontaneous
  Country: ES (occurrence: ES)
  Receive Date: 20070213
  Receipt Date: 20181205
  Transmission Date: 20190205
  Serious: Yes (Life-Threatening, Hospitalization)
  Sender: FDA-Public Use
  Company Number: ES-ELI_LILLY_AND_COMPANY-ES200702001088

PATIENT
  Age: 64 Year
  Sex: Female
  Weight: 79 kg

DRUGS (2)
  1. GEMZAR [Suspect]
     Active Substance: GEMCITABINE HYDROCHLORIDE
     Indication: OVARIAN CANCER
     Dosage: 180 MG, WEEKLY (1/W)
     Route: 042
     Dates: start: 20051020, end: 20151020
  2. TAXOL [Concomitant]
     Active Substance: PACLITAXEL
     Indication: METASTASES TO OVARY
     Dosage: 140 MG, 2/M
     Route: 042
     Dates: start: 20051020, end: 20051020

REACTIONS (2)
  - Myositis [Recovered/Resolved]
  - Rhabdomyolysis [Recovered/Resolved]

NARRATIVE: CASE EVENT DATE: 20051027
